FAERS Safety Report 9133533 (Version 1)
Quarter: 2013Q1

REPORT INFORMATION
  Report Type: Spontaneous
  Country: US (occurrence: US)
  Receive Date: 20130124
  Receipt Date: 20130124
  Transmission Date: 20140127
  Serious: Yes (Other)
  Sender: FDA-Public Use
  Company Number: US-BRACCO-007571

PATIENT
  Sex: Male

DRUGS (3)
  1. MULTIHANCE [Suspect]
     Indication: NUCLEAR MAGNETIC RESONANCE IMAGING ABDOMINAL
     Route: 042
     Dates: start: 20120210, end: 20120210
  2. MULTIHANCE [Suspect]
     Indication: ABDOMINAL MASS
     Route: 042
     Dates: start: 20120210, end: 20120210
  3. DILANTIN [Concomitant]
     Indication: CONVULSION

REACTIONS (2)
  - Convulsion [Recovered/Resolved]
  - Vomiting [Recovered/Resolved]
